FAERS Safety Report 9214446 (Version 1)
Quarter: 2013Q2

REPORT INFORMATION
  Report Type: Spontaneous
  Country: DE (occurrence: DE)
  Receive Date: 20130405
  Receipt Date: 20130405
  Transmission Date: 20140414
  Serious: Yes (Other)
  Sender: FDA-Public Use
  Company Number: DE-ASTELLAS-2013EU003010

PATIENT
  Sex: Female

DRUGS (1)
  1. PROTOPIC [Suspect]
     Indication: ORAL LICHEN PLANUS
     Dosage: UNK
     Route: 065

REACTIONS (2)
  - Off label use [Unknown]
  - Breast cancer [Unknown]
